FAERS Safety Report 16252618 (Version 1)
Quarter: 2019Q2

REPORT INFORMATION
  Report Type: Spontaneous
  Country: PL (occurrence: PL)
  Receive Date: 20190429
  Receipt Date: 20190429
  Transmission Date: 20190711
  Serious: Yes (Other)
  Sender: FDA-Public Use
  Company Number: PL-MYLANLABS-2019M1040023

PATIENT
  Age: 68 Year
  Sex: Male

DRUGS (2)
  1. CLOPIDOGREL [Suspect]
     Active Substance: CLOPIDOGREL BISULFATE
     Indication: PRODUCT USED FOR UNKNOWN INDICATION
     Dosage: UNK
  2. ASPIRIN                            /00002701/ [Interacting]
     Active Substance: ASPIRIN
     Indication: PRODUCT USED FOR UNKNOWN INDICATION
     Dosage: UNK

REACTIONS (6)
  - Monoparesis [Unknown]
  - Haemorrhagic stroke [Unknown]
  - Labelled drug-drug interaction medication error [Unknown]
  - Incorrect product administration duration [Unknown]
  - Hemiparesis [Unknown]
  - Headache [Unknown]

NARRATIVE: CASE EVENT DATE: 20180602
